FAERS Safety Report 9252001 (Version 1)
Quarter: 2013Q1

REPORT INFORMATION
  Report Type: Spontaneous
  Country: US (occurrence: None)
  Receive Date: 20130305
  Receipt Date: 20130305
  Transmission Date: 20140127
  Serious: Yes (Hospitalization)
  Sender: FDA-Public Use
  Company Number: 163-21880-12091178

PATIENT
  Age: 67 Year
  Sex: Male
  Weight: 114 kg

DRUGS (23)
  1. REVLIMID (LENALIDOMIDE) (25 MILLIGRAM, CAPSULES) [Suspect]
     Indication: PLASMA CELL MYELOMA
     Dosage: 25 MG, 21 IN 21 D, PO
     Dates: start: 20120517
  2. MEGACE (MEGESTROL ACETATE) [Concomitant]
  3. TEMAZEPAM (TEMAZEPAM) [Concomitant]
  4. CALCIUM 600 HIGH POTENCY [Concomitant]
  5. COLACE (DOCUSATE SODIUM) [Concomitant]
  6. ROBAXIN (METHOCARBAMOL) [Concomitant]
  7. FLOMAX [Concomitant]
  8. PEPCID (FAMOTIDINE) [Concomitant]
  9. SYMBICORT (SYMBICORT TURBUHALER ^DRACO^) [Concomitant]
  10. MORPHINE SULFATE CR (MORPHINE SULFATE [Concomitant]
  11. PROMETHAZINE HCL (PROMETHAZINE HYDROCHLORIDE) [Concomitant]
  12. ZOFRAN (ONDANSETRON HYDROCHLORIDE) [Concomitant]
  13. DILAUDID (HYDROMORPHONE HYDROCHLORIDE) [Concomitant]
  14. LORAZEPAM (LORAZEPAM) [Concomitant]
  15. REMERON (MIRTAZAPINE) [Concomitant]
  16. IBUPROFEN (IBUPROFEN) [Concomitant]
  17. DEXAMETHASONE (DEXAMETHASONE) [Concomitant]
  18. MIRALAX [Concomitant]
  19. SAW PALMETTO (SERENOA REPENS) [Concomitant]
  20. ACIDOPHILUS (INFLORAN) [Concomitant]
  21. MULTIVIRAL [Concomitant]
  22. CHERATUSSIN AC (CHERATUSSIN AC) [Concomitant]
  23. DURAGESIC (FENTANYL) [Concomitant]

REACTIONS (2)
  - Pneumonia [None]
  - Pulmonary embolism [None]
